FAERS Safety Report 20280585 (Version 3)
Quarter: 2022Q1

REPORT INFORMATION
  Report Type: Report from Study
  Country: US (occurrence: US)
  Receive Date: 20220103
  Receipt Date: 20220211
  Transmission Date: 20220423
  Serious: Yes (Death, Life-Threatening, Hospitalization, Disabling, Other)
  Sender: FDA-Public Use
  Company Number: US-AMGEN-USACT2021207633

PATIENT
  Age: 61 Year
  Sex: Female
  Weight: 65.9 kg

DRUGS (52)
  1. AMG-510 [Suspect]
     Active Substance: AMG-510
     Indication: Lung adenocarcinoma
     Dosage: TOTAL DOSE ADMINISTERED: 1920MG
     Route: 065
     Dates: start: 20210511, end: 20211216
  2. MODERNA COVID-19 VACCINE [Suspect]
     Active Substance: ELASOMERAN
     Indication: Product used for unknown indication
     Dosage: UNK
     Route: 065
  3. ADVAIR HFA [Concomitant]
     Active Substance: FLUTICASONE PROPIONATE\SALMETEROL XINAFOATE
     Dosage: 250-50 MCG, BID
     Dates: start: 20180523
  4. ESTRACE [Concomitant]
     Active Substance: ESTRADIOL
     Dosage: 1 MILLIGRAM, QD
     Dates: start: 20200819
  5. SUBLIMAZE [Concomitant]
     Active Substance: FENTANYL CITRATE
     Dosage: 1,500 MCG/30 ML
  6. CEFIXIME [Concomitant]
     Active Substance: CEFIXIME
     Indication: Muscle spasms
     Dosage: 10 MILLIGRAM, BID
     Dates: start: 202104
  7. LASIX [Concomitant]
     Active Substance: FUROSEMIDE
     Dosage: 20 MILLIGRAM, QD
  8. NORCO [Concomitant]
     Active Substance: ACETAMINOPHEN\HYDROCODONE BITARTRATE
     Dosage: 5-325 MG, Q6H
     Dates: start: 201901
  9. PEPCID [Concomitant]
     Active Substance: FAMOTIDINE
     Dosage: 20 MILLIGRAM
     Route: 048
  10. PROAIR HFA [Concomitant]
     Active Substance: ALBUTEROL SULFATE
     Dosage: 90 MICROGRAM, AS NECESSARY
     Dates: start: 20180723
  11. SUMATRIPTAN [Concomitant]
     Active Substance: SUMATRIPTAN
     Dosage: UNK
  12. EXCEDRIN MIGRAINE [Concomitant]
     Active Substance: ACETAMINOPHEN\ASPIRIN\CAFFEINE
     Indication: Headache
     Dosage: UNK UNK, AS NECESSARY
     Dates: start: 2014
  13. ESTRADIOL [Concomitant]
     Active Substance: ESTRADIOL
     Dosage: UNK
     Dates: start: 201608
  14. IMITREX [Concomitant]
     Active Substance: SUMATRIPTAN SUCCINATE
     Indication: Headache
     Dosage: 50 MILLIGRAM, AS NECESSARY
     Dates: start: 201908
  15. FUROSEMIDE [Concomitant]
     Active Substance: FUROSEMIDE
     Indication: Chronic obstructive pulmonary disease
     Dosage: 20 MILLIGRAM
     Dates: start: 202012
  16. NEXIUM I.V. [Concomitant]
     Active Substance: ESOMEPRAZOLE SODIUM
     Dosage: 40 MILLIGRAM, BID
     Dates: start: 20160529
  17. KEYTRUDA [Concomitant]
     Active Substance: PEMBROLIZUMAB
  18. PREDNISOLONE [Concomitant]
     Active Substance: PREDNISOLONE
     Dosage: 5 MILLIGRAM, QD
  19. PHENERGAN [Concomitant]
     Active Substance: PROMETHAZINE HYDROCHLORIDE
     Dosage: 25 MILLIGRAM, Q6H
  20. KENALOG [Concomitant]
     Active Substance: TRIAMCINOLONE ACETONIDE
     Dosage: UNK UNK, BID
     Route: 061
  21. NARCAN [Concomitant]
     Active Substance: NALOXONE HYDROCHLORIDE
     Dosage: 4 MILLIGRAM, ONE TIME DOSE
  22. SINGULAIR [Concomitant]
     Active Substance: MONTELUKAST SODIUM
     Dosage: 10 MILLIGRAM, QD
  23. CETIRIZINE [Concomitant]
     Active Substance: CETIRIZINE HYDROCHLORIDE
     Dosage: 5-120 MG, BID
     Dates: start: 20190718
  24. SPIRIVA [Concomitant]
     Active Substance: TIOTROPIUM BROMIDE MONOHYDRATE
     Dosage: 1 PUFF, QD
  25. IMITREX [Concomitant]
     Active Substance: SUMATRIPTAN SUCCINATE
     Dosage: 50 MILLIGRAM, QD
  26. OMEPRAZOLE [Concomitant]
     Active Substance: OMEPRAZOLE
  27. HUMALOG [Concomitant]
     Active Substance: INSULIN LISPRO
  28. VERSED [Concomitant]
     Active Substance: MIDAZOLAM HYDROCHLORIDE
  29. HYDROCORTISONE [Concomitant]
     Active Substance: HYDROCORTISONE
  30. NOREPINEPHRINE [Concomitant]
     Active Substance: NOREPINEPHRINE
  31. VASOSTRICT [Concomitant]
     Active Substance: VASOPRESSIN
     Dosage: 40 UNITS IN SODIUM CHLORIDE 0.9% 250 ML INFUSION, 0.03 UNITS/MIN,
     Route: 042
  32. SODIUM BICARBONATE [Concomitant]
     Active Substance: SODIUM BICARBONATE
  33. DEXMEDETOMIDINE [Concomitant]
     Active Substance: DEXMEDETOMIDINE
  34. MIDAZOLAM [Concomitant]
     Active Substance: MIDAZOLAM
  35. EPINEPHRINE [Concomitant]
     Active Substance: EPINEPHRINE
     Dosage: 0.1 MG/ML
  36. POTASSIUM CHLORIDE [Concomitant]
     Active Substance: POTASSIUM CHLORIDE
     Dosage: 20 MEQ/100 ML
  37. SOLU-MEDROL [Concomitant]
     Active Substance: METHYLPREDNISOLONE SODIUM SUCCINATE
     Dosage: 125 MILLIGRAM
  38. DEXTROSE [Concomitant]
     Active Substance: DEXTROSE
  39. FLAGYL [Concomitant]
     Active Substance: METRONIDAZOLE\METRONIDAZOLE HYDROCHLORIDE
     Dosage: 500 MILLIGRAM
  40. ROCEPHIN [Concomitant]
     Active Substance: CEFTRIAXONE SODIUM
     Dosage: 2000 MILLIGRAM
  41. TYLENOL [Concomitant]
     Active Substance: ACETAMINOPHEN
     Dosage: 160 MG/5 ML (5 ML) ORAL SOLUTION 640 MG,
  42. BUSPAR [Concomitant]
     Active Substance: BUSPIRONE HYDROCHLORIDE
     Dosage: 30 MILLIGRAM
  43. MAGNESIUM SULFATE [Concomitant]
     Active Substance: MAGNESIUM SULFATE
     Dosage: 4 GRAM/100 ML
  44. PRECEDEX [Concomitant]
     Active Substance: DEXMEDETOMIDINE HYDROCHLORIDE
     Dosage: 400 MCG/100 ML
  45. GLUCAGEN [Concomitant]
     Active Substance: GLUCAGON HYDROCHLORIDE
     Dosage: 1 MG/ML INJECTION 1 MG
  46. CHLORHEXIDINE GLUCONATE [Concomitant]
     Active Substance: CHLORHEXIDINE GLUCONATE
     Dosage: 0.12 % ORAL SOLUTION 5 ML
  47. SOLU-CORTEF [Concomitant]
     Active Substance: HYDROCORTISONE SODIUM SUCCINATE
     Dosage: 50 MILLIGRAM
  48. CALCIUM GLUCONATE [Concomitant]
     Active Substance: CALCIUM GLUCONATE
     Dosage: 2000 MILLIGRAM
  49. HUMULIN R [Concomitant]
     Active Substance: INSULIN HUMAN
  50. NOVOLIN R [Concomitant]
     Active Substance: INSULIN HUMAN
  51. LOKELMA [Concomitant]
     Active Substance: SODIUM ZIRCONIUM CYCLOSILICATE
     Dosage: 10 GRAM
  52. DIPRIVAN [Concomitant]
     Active Substance: PROPOFOL

REACTIONS (19)
  - Cardiac arrest [Fatal]
  - Disseminated intravascular coagulation [Unknown]
  - Encephalopathy [Unknown]
  - Hypoxia [Unknown]
  - Multiple organ dysfunction syndrome [Recovered/Resolved]
  - Sepsis [Unknown]
  - Troponin T increased [Unknown]
  - Hypotension [Unknown]
  - International normalised ratio increased [Unknown]
  - Blood creatinine increased [Unknown]
  - Pyrexia [Unknown]
  - Hyperglycaemia [Unknown]
  - Proteinuria [Unknown]
  - Hypoalbuminaemia [Unknown]
  - Hypocalcaemia [Unknown]
  - Anaemia [Unknown]
  - Activated partial thromboplastin time prolonged [Unknown]
  - Alanine aminotransferase increased [Unknown]
  - Aspartate aminotransferase increased [Unknown]

NARRATIVE: CASE EVENT DATE: 20211217
